FAERS Safety Report 9011727 (Version 1)
Quarter: 2013Q1

REPORT INFORMATION
  Report Type: Spontaneous
  Country: US (occurrence: US)
  Receive Date: 20130114
  Receipt Date: 20130114
  Transmission Date: 20140127
  Serious: Yes (Other)
  Sender: FDA-Public Use
  Company Number: US-009507513-0909USA03218

PATIENT
  Age: 33 Year
  Sex: Female
  Weight: 80.74 kg

DRUGS (4)
  1. SINGULAIR [Suspect]
     Indication: ASTHMA
     Route: 048
  2. SINGULAIR [Suspect]
     Indication: HYPERSENSITIVITY
  3. ALLEGRA [Concomitant]
     Indication: ASTHMA
     Dosage: 10 MG, UNK
  4. ALLEGRA [Concomitant]
     Indication: HYPERSENSITIVITY

REACTIONS (6)
  - Abnormal behaviour [Unknown]
  - Depressed mood [Unknown]
  - Fluid retention [Unknown]
  - Insomnia [Unknown]
  - Irritability [Unknown]
  - Mood altered [Unknown]
